FAERS Safety Report 7912567-7 (Version None)
Quarter: 2011Q4

REPORT INFORMATION
  Report Type: 
  Country: None (occurrence: None)
  Receive Date: 20111114
  Receipt Date: 20111110
  Transmission Date: 20120403
  Serious: No
  Sender: FDA-Public Use
  Company Number: US-PFIZER INC-2011277344

PATIENT
  Sex: Male
  Weight: 58.957 kg

DRUGS (2)
  1. QUERCETIN [Suspect]
     Indication: PROSTATIC DISORDER
     Dosage: UNK
  2. CHANTIX [Suspect]
     Indication: SMOKING CESSATION THERAPY
     Dosage: UNK, 2X/DAY (BY CUTTING 0.5 MG TABLET INTO HALF)
     Route: 048
     Dates: start: 20110101

REACTIONS (3)
  - DRUG INEFFECTIVE [None]
  - RHINORRHOEA [None]
  - SNEEZING [None]
